FAERS Safety Report 4714428-3 (Version None)
Quarter: 2005Q3

REPORT INFORMATION
  Report Type: 
  Country: None (occurrence: None)
  Receive Date: 20050714
  Receipt Date: 20050630
  Transmission Date: 20060218
  Serious: Yes (Other)
  Sender: FDA-Public Use
  Company Number: IE-JNJFOC-20050405477

PATIENT
  Sex: Male
  Weight: 31.5 kg

DRUGS (1)
  1. CONCERTA [Suspect]
     Route: 049

REACTIONS (2)
  - LEUKOPENIA [None]
  - NEUTROPENIA [None]
